FAERS Safety Report 10758894 (Version 3)
Quarter: 2018Q2

REPORT INFORMATION
  Report Type: Spontaneous
  Country: US (occurrence: US)
  Receive Date: 20150203
  Receipt Date: 20180427
  Transmission Date: 20180711
  Serious: Yes (Hospitalization, Other)
  Sender: FDA-Public Use
  Company Number: US-PFIZER INC-2015039783

PATIENT
  Age: 60 Year
  Sex: Male
  Weight: 78.47 kg

DRUGS (5)
  1. LYRICA [Suspect]
     Active Substance: PREGABALIN
     Dosage: 300 MG, 2X/DAY
  2. LYRICA [Suspect]
     Active Substance: PREGABALIN
     Indication: SPINAL COLUMN STENOSIS
     Dosage: 75 MG, UNK
  3. DURAGESIC [Concomitant]
     Active Substance: FENTANYL
     Dosage: 75 UG, UNK
  4. LYRICA [Suspect]
     Active Substance: PREGABALIN
     Indication: FIBROMYALGIA
     Dosage: 50 MG, UNK
  5. LYRICA [Suspect]
     Active Substance: PREGABALIN
     Indication: NEURALGIA
     Dosage: 150 MG, UNK

REACTIONS (6)
  - Condition aggravated [Not Recovered/Not Resolved]
  - Memory impairment [Unknown]
  - Drug ineffective [Unknown]
  - Speech disorder [Unknown]
  - Pneumonia [Unknown]
  - Panic attack [Not Recovered/Not Resolved]
